FAERS Safety Report 10963322 (Version 1)
Quarter: 2015Q1

REPORT INFORMATION
  Report Type: Spontaneous
  Country: FR (occurrence: FR)
  Receive Date: 20150327
  Receipt Date: 20150327
  Transmission Date: 20150721
  Serious: Yes (Hospitalization)
  Sender: FDA-Public Use
  Company Number: FR-ASTRAZENECA-2015SE26951

PATIENT
  Age: 35156 Day
  Sex: Male

DRUGS (7)
  1. BISOCE [Suspect]
     Active Substance: BISOPROLOL
     Route: 048
     Dates: start: 20141112, end: 20141117
  2. LEVOTHYROX [Concomitant]
     Active Substance: LEVOTHYROXINE
  3. AMLOR [Concomitant]
     Active Substance: AMLODIPINE BESYLATE
  4. TAHOR [Suspect]
     Active Substance: ATORVASTATIN CALCIUM
     Route: 048
     Dates: start: 20141101, end: 20141122
  5. CALCIPARINE [Concomitant]
     Active Substance: HEPARIN CALCIUM
     Dates: start: 20141028, end: 20141104
  6. INEXIUM [Suspect]
     Active Substance: ESOMEPRAZOLE
     Route: 048
     Dates: start: 20141101, end: 20141120
  7. XATRAL [Concomitant]
     Active Substance: ALFUZOSIN

REACTIONS (5)
  - Eosinophilia [Recovered/Resolved]
  - Toxic skin eruption [Recovered/Resolved]
  - Rash [Recovered/Resolved]
  - Thrombocytopenia [Recovered/Resolved]
  - Eczema [Recovered/Resolved]

NARRATIVE: CASE EVENT DATE: 20141117
